FAERS Safety Report 10353362 (Version 7)
Quarter: 2014Q4

REPORT INFORMATION
  Report Type: Report from Study
  Country: JP (occurrence: JP)
  Receive Date: 20140731
  Receipt Date: 20141211
  Transmission Date: 20150528
  Serious: Yes (Hospitalization)
  Sender: FDA-Public Use
  Company Number: JP-AMGEN-JPNCT2014055963

PATIENT
  Age: 72 Year
  Sex: Female
  Weight: 43 kg

DRUGS (5)
  1. AMG 785 [Suspect]
     Active Substance: ROMOSOZUMAB
     Indication: OSTEOPOROSIS POSTMENOPAUSAL
     Dosage: UNK
     Route: 058
     Dates: start: 20130426, end: 20140328
  2. LOXONIN [Concomitant]
     Active Substance: LOXOPROFEN SODIUM
     Dosage: 100 MG, UNK
     Route: 061
     Dates: start: 20140508
  3. DENOSUMAB [Suspect]
     Active Substance: DENOSUMAB
     Indication: OSTEOPOROSIS POSTMENOPAUSAL
     Dosage: 1 ML, UNK
     Route: 058
     Dates: start: 20140425
  4. CALCIUM [Concomitant]
     Active Substance: CALCIUM
     Dosage: 575 MG, UNK
     Route: 048
     Dates: start: 20130316
  5. VITAMIN D                          /00107901/ [Concomitant]
     Active Substance: ERGOCALCIFEROL
     Dosage: 500 IU, UNK
     Route: 048
     Dates: start: 20130316

REACTIONS (1)
  - Pernicious anaemia [Not Recovered/Not Resolved]

NARRATIVE: CASE EVENT DATE: 20140723
